FAERS Safety Report 7362412-6 (Version None)
Quarter: 2011Q1

REPORT INFORMATION
  Report Type: 
  Country: None (occurrence: None)
  Receive Date: 20110318
  Receipt Date: 20110310
  Transmission Date: 20110831
  Serious: Yes (Hospitalization)
  Sender: FDA-Public Use
  Company Number: US-AMGEN-USASP2011013631

PATIENT
  Age: 58 Year
  Sex: Female

DRUGS (4)
  1. ENBREL [Suspect]
     Indication: PSORIASIS
     Dosage: 50 MG, 2 TIMES/WK
     Dates: start: 20091001, end: 20110122
  2. ANTIHYPERTENSIVES [Concomitant]
  3. ASPIRIN [Concomitant]
     Dosage: 81 MG, UNK
  4. ANTIDEPRESSANTS [Concomitant]

REACTIONS (3)
  - GRAND MAL CONVULSION [None]
  - SPINAL FRACTURE [None]
  - PSORIASIS [None]
